FAERS Safety Report 17079953 (Version 1)
Quarter: 2019Q4

REPORT INFORMATION
  Report Type: Spontaneous
  Country: IT (occurrence: IT)
  Receive Date: 20191127
  Receipt Date: 20191127
  Transmission Date: 20200122
  Serious: Yes (Other)
  Sender: FDA-Public Use
  Company Number: IT-SUN PHARMACEUTICAL INDUSTRIES LTD-2019RR-228783

PATIENT
  Sex: Female

DRUGS (3)
  1. ZOLEDRONIC ACID [Suspect]
     Active Substance: ZOLEDRONIC ACID
     Indication: BREAST CANCER
     Dosage: Z 4 MG IN IV INFUSION FOR 15 MIN BEGINNING OF TREATMENT AND EVERY 6 M - INJECTION
     Route: 042
  2. LETROZOLE. [Suspect]
     Active Substance: LETROZOLE
     Indication: BREAST CANCER
     Dosage: Z 4 MG IN IV INFUSION FOR 15 MIN BEGINNING OF TREATMENT AND EVERY 6 M
     Route: 042
  3. TRIPTORELIN PAMOATE [Suspect]
     Active Substance: TRIPTORELIN PAMOATE
     Indication: BREAST CANCER
     Dosage: 3.75 MILLIGRAMS, 4 WEEK
     Route: 030

REACTIONS (1)
  - Disease progression [Unknown]
